FAERS Safety Report 15158248 (Version 1)
Quarter: 2018Q3

REPORT INFORMATION
  Report Type: Spontaneous
  Country: GB (occurrence: GB)
  Receive Date: 20180718
  Receipt Date: 20180718
  Transmission Date: 20181010
  Serious: Yes (Other)
  Sender: FDA-Public Use
  Company Number: GB-MYLANLABS-2018M1051157

PATIENT
  Age: 5 Year
  Sex: Male

DRUGS (1)
  1. MYCOPHENOLATE MOFETIL. [Suspect]
     Active Substance: MYCOPHENOLATE MOFETIL
     Indication: ACUTE DISSEMINATED ENCEPHALOMYELITIS
     Route: 065

REACTIONS (4)
  - Optic neuritis [Unknown]
  - Product use in unapproved indication [Unknown]
  - Acute disseminated encephalomyelitis [Unknown]
  - Disease recurrence [Unknown]
